FAERS Safety Report 20818247 (Version 1)
Quarter: 2022Q2

REPORT INFORMATION
  Report Type: Spontaneous
  Country: US (occurrence: US)
  Receive Date: 20220512
  Receipt Date: 20220512
  Transmission Date: 20220721
  Serious: No
  Sender: FDA-Public Use
  Company Number: US-PFIZER INC-202200051152

PATIENT
  Age: 6 Year
  Sex: Male
  Weight: 25 kg

DRUGS (4)
  1. VANCOMYCIN HYDROCHLORIDE [Suspect]
     Active Substance: VANCOMYCIN HYDROCHLORIDE
     Dosage: 2.5 ML, 3X/DAY (TAKES 2.5ML THREE TIMES PER DAY)
  2. FLAGYL [Suspect]
     Active Substance: METRONIDAZOLE\METRONIDAZOLE HYDROCHLORIDE
     Dosage: 1 ML, 3X/DAY (1ML THREE TIMES A DAY)
  3. AMOXICILLIN [Suspect]
     Active Substance: AMOXICILLIN
     Dosage: 7.5 ML, 3X/DAY (7.5ML THREE TIMES A DAY)
  4. CIPRO [Suspect]
     Active Substance: CIPROFLOXACIN HYDROCHLORIDE
     Dosage: 5 ML, 2X/DAY

REACTIONS (1)
  - Feeling abnormal [Unknown]
